FAERS Safety Report 15144687 (Version 2)
Quarter: 2018Q3

REPORT INFORMATION
  Report Type: Spontaneous
  Country: US (occurrence: US)
  Receive Date: 20180713
  Receipt Date: 20180718
  Transmission Date: 20181010
  Serious: Yes (Other)
  Sender: FDA-Public Use
  Company Number: US-PFIZER INC-2018283742

PATIENT
  Age: 63 Year
  Sex: Male
  Weight: 61.23 kg

DRUGS (10)
  1. GABAPENTIN. [Suspect]
     Active Substance: GABAPENTIN
     Dosage: 600 MG, (2 PILL)
  2. DULOXETINE. [Concomitant]
     Active Substance: DULOXETINE
     Indication: AFFECTIVE DISORDER
     Dosage: 30 MG, 1X/DAY (ONE CAPSULE ORALLY EVERY MORNING FOR 7 DAYS)
     Route: 048
  3. AMITRIPTYLINE [Concomitant]
     Active Substance: AMITRIPTYLINE
     Indication: AFFECTIVE DISORDER
     Dosage: UNK
  4. DULOXETINE. [Concomitant]
     Active Substance: DULOXETINE
     Indication: PAIN
     Dosage: 60 MG, 1X/DAY (TWO CAPSULES EVERY MORNING)
     Route: 048
  5. GABAPENTIN. [Suspect]
     Active Substance: GABAPENTIN
     Dosage: 900 MG, (3 PILL)
  6. GABAPENTIN. [Suspect]
     Active Substance: GABAPENTIN
     Dosage: 1200 MG, (4 PILL)
  7. GABAPENTIN. [Suspect]
     Active Substance: GABAPENTIN
     Dosage: 900 MG, 4X/DAY(300MG, THREE CAPSULES FOUR TIMES A DAY)
     Route: 048
     Dates: start: 201802
  8. GABAPENTIN. [Suspect]
     Active Substance: GABAPENTIN
     Indication: FIBROMYALGIA
     Dosage: 300 MG, (1 PILL)
     Dates: start: 201712
  9. AMITRIPTYLINE [Concomitant]
     Active Substance: AMITRIPTYLINE
     Indication: PAIN
     Dosage: 10 MG, 1X/DAY
  10. DULOXETINE. [Concomitant]
     Active Substance: DULOXETINE
     Indication: ANXIETY
     Dosage: UNK

REACTIONS (18)
  - Crying [Unknown]
  - Feeling abnormal [Unknown]
  - Dysphonia [Unknown]
  - Choking [Unknown]
  - Hallucination [Not Recovered/Not Resolved]
  - Eating disorder [Unknown]
  - Confusional state [Unknown]
  - Fall [Unknown]
  - Tremor [Unknown]
  - Eye disorder [Unknown]
  - Muscle spasms [Unknown]
  - Depression [Unknown]
  - Deafness [Unknown]
  - Drug ineffective for unapproved indication [Unknown]
  - Cataract [Unknown]
  - Dizziness [Unknown]
  - Visual impairment [Unknown]
  - Mood swings [Unknown]
